FAERS Safety Report 19078197 (Version 1)
Quarter: 2021Q1

REPORT INFORMATION
  Report Type: Spontaneous
  Country: CA (occurrence: CA)
  Receive Date: 20210331
  Receipt Date: 20210331
  Transmission Date: 20210420
  Serious: Yes (Hospitalization)
  Sender: FDA-Public Use
  Company Number: CA-JNJFOC-20210352232

PATIENT
  Age: 54 Year
  Sex: Female
  Weight: 53 kg

DRUGS (3)
  1. REMICADE [Suspect]
     Active Substance: INFLIXIMAB
     Indication: ANKYLOSING SPONDYLITIS
     Route: 042
  2. PANADEINE CO [Concomitant]
     Active Substance: ACETAMINOPHEN\CODEINE PHOSPHATE
  3. IRON [Concomitant]
     Active Substance: IRON
     Route: 042

REACTIONS (9)
  - Dehydration [Unknown]
  - Venous occlusion [Unknown]
  - Inappropriate schedule of product administration [Unknown]
  - Heart rate abnormal [Unknown]
  - Vomiting [Unknown]
  - Off label use [Unknown]
  - Seasonal allergy [Unknown]
  - Intentional product use issue [Unknown]
  - Hypotension [Unknown]
